FAERS Safety Report 6850856-8 (Version None)
Quarter: 2010Q3

REPORT INFORMATION
  Report Type: 
  Country: None (occurrence: None)
  Receive Date: 20100716
  Receipt Date: 20100707
  Transmission Date: 20110219
  Serious: Yes (Other)
  Sender: FDA-Public Use
  Company Number: AR-AMGEN-QUU423809

PATIENT
  Sex: Female
  Weight: 52 kg

DRUGS (5)
  1. ENBREL [Suspect]
     Indication: RHEUMATOID ARTHRITIS
     Route: 058
     Dates: start: 20070511
  2. PANTOP [Concomitant]
     Indication: PROPHYLAXIS AGAINST GASTROINTESTINAL ULCER
     Route: 065
  3. ALPRAZOLAM [Concomitant]
     Dosage: 1 TABLET/ 2 MG/ UNKNOWN FREQUENCY
     Route: 065
  4. DEFLAZACORT [Concomitant]
     Dosage: 1 TABLET/6 MG/UNKNOWN FREQUENCY
     Route: 065
  5. LOTRIAL [Concomitant]
     Indication: HYPERTENSION
     Dosage: 1 TABLET/10 MG/UNKNOWN FREQUENCY
     Route: 065

REACTIONS (2)
  - DEPRESSION [None]
  - NEUROFIBROMA [None]
